FAERS Safety Report 5059810-2 (Version None)
Quarter: 2006Q3

REPORT INFORMATION
  Report Type: 
  Country: None (occurrence: None)
  Receive Date: 20060724
  Receipt Date: 20020128
  Transmission Date: 20061208
  Serious: Yes (Disabling)
  Sender: FDA-Public Use
  Company Number: DE-GLAXOSMITHKLINE-D0025264A

PATIENT
  Age: 42 Year
  Sex: Male
  Weight: 75.7 kg

DRUGS (8)
  1. ZIAGEN [Suspect]
     Indication: HIV INFECTION
     Dosage: 300MG TWICE PER DAY
     Route: 048
     Dates: start: 19990715, end: 20051024
  2. COMBIVIR [Suspect]
     Indication: HIV INFECTION
     Dosage: 450MG PER DAY
     Route: 048
     Dates: start: 19970411, end: 20051024
  3. MULTIPLE MEDICATION [Concomitant]
     Indication: HIV INFECTION
     Route: 065
  4. INDINIVIR SULFATE [Concomitant]
     Indication: HIV INFECTION
     Route: 065
     Dates: start: 19970411, end: 19990824
  5. EFAVIRENZ [Concomitant]
     Indication: HIV INFECTION
     Route: 065
     Dates: start: 19990824, end: 20001221
  6. TENOFOVIR [Concomitant]
     Indication: HIV INFECTION
     Route: 065
     Dates: start: 20030617
  7. PEGASYS [Concomitant]
     Indication: HEPATITIS C
     Dosage: 180MCG WEEKLY
     Route: 065
  8. RIBAVIRIN [Concomitant]
     Indication: HEPATITIS C
     Dosage: 800MG UNKNOWN
     Route: 065

REACTIONS (7)
  - FAT REDISTRIBUTION [None]
  - HEPATIC STEATOSIS [None]
  - HEPATOSPLENOMEGALY [None]
  - LIPODYSTROPHY ACQUIRED [None]
  - LIPOHYPERTROPHY [None]
  - PRURITUS [None]
  - URTICARIA [None]
